FAERS Safety Report 22374196 (Version 1)
Quarter: 2023Q2

REPORT INFORMATION
  Report Type: Spontaneous
  Country: JP (occurrence: JP)
  Receive Date: 20230526
  Receipt Date: 20230526
  Transmission Date: 20230722
  Serious: Yes (Death, Hospitalization, Other)
  Sender: FDA-Public Use
  Company Number: JP-Merck Healthcare KGaA-9384253

PATIENT
  Age: 60 Year
  Sex: Male

DRUGS (3)
  1. ERBITUX [Suspect]
     Active Substance: CETUXIMAB
     Indication: Colon cancer
     Dosage: 400 MG/M2, UNK
     Route: 041
     Dates: start: 20220520
  2. BRAFTOVI [Suspect]
     Active Substance: ENCORAFENIB
     Indication: Colon cancer
     Dosage: 300 MG, DAILY
     Route: 048
     Dates: start: 20220520, end: 20220525
  3. MEKTOVI [Suspect]
     Active Substance: BINIMETINIB
     Indication: Colon cancer
     Dosage: 45 MG, UNKNOWN
     Route: 048
     Dates: start: 20220520, end: 20220524

REACTIONS (6)
  - Interstitial lung disease [Fatal]
  - Physical deconditioning [Unknown]
  - Serous retinal detachment [Unknown]
  - Glomerular filtration rate decreased [Unknown]
  - Platelet count decreased [Unknown]
  - Diarrhoea [Unknown]

NARRATIVE: CASE EVENT DATE: 20220524
